FAERS Safety Report 10647453 (Version 1)
Quarter: 2014Q4

REPORT INFORMATION
  Report Type: Spontaneous
  Country: CA (occurrence: CA)
  Receive Date: 20141211
  Receipt Date: 20141211
  Transmission Date: 20150529
  Serious: Yes (Other)
  Sender: FDA-Public Use
  Company Number: CA-009507513-1412CAN005663

PATIENT
  Age: 86 Year
  Sex: Male

DRUGS (2)
  1. NITRO-DUR [Suspect]
     Active Substance: NITROGLYCERIN
     Indication: PRODUCT USED FOR UNKNOWN INDICATION
     Dosage: 1 PATCH (0.4), UNK
     Route: 062
  2. NITRO-DUR [Suspect]
     Active Substance: NITROGLYCERIN
     Indication: PRODUCT USED FOR UNKNOWN INDICATION
     Dosage: 1 PATCH, 0.6 ,UNK
     Route: 062

REACTIONS (2)
  - Respiratory failure [Not Recovered/Not Resolved]
  - Accidental overdose [Unknown]
